FAERS Safety Report 9777682 (Version 1)
Quarter: 2013Q4

REPORT INFORMATION
  Report Type: Spontaneous
  Country: IN (occurrence: IN)
  Receive Date: 20131223
  Receipt Date: 20131223
  Transmission Date: 20140711
  Serious: Yes (Other)
  Sender: FDA-Public Use
  Company Number: IN-PAR PHARMACEUTICAL, INC-2013SCPR007835

PATIENT
  Sex: 0

DRUGS (6)
  1. BUPROPION HCL XL [Suspect]
     Indication: DEPRESSIVE SYMPTOM
     Dosage: 75 MG, / DAY
     Route: 065
  2. BUPROPION HCL XL [Suspect]
     Dosage: 300 MG, / DAY
     Route: 065
  3. CLONAZEPAM [Concomitant]
     Indication: DEPRESSIVE SYMPTOM
     Dosage: 0.75 MG, / DAY
  4. CLONAZEPAM [Concomitant]
     Dosage: 1.5 MG, / DAY, IN DIVIDED DOSES
     Route: 065
  5. CARBIDOPA AND LEVODOPA [Concomitant]
     Indication: PARKINSON^S DISEASE
     Dosage: 37.5/ 150 MG, / DAY
     Route: 065
  6. AMLODIPINE W/ATENOLOL [Concomitant]
     Indication: HYPERTENSION
     Dosage: 5/ 50 MG, / DAY
     Route: 065

REACTIONS (1)
  - Hyponatraemia [Recovered/Resolved]
